FAERS Safety Report 11366030 (Version 2)
Quarter: 2015Q3

REPORT INFORMATION
  Report Type: Spontaneous
  Country: US (occurrence: US)
  Receive Date: 20150811
  Receipt Date: 20150915
  Transmission Date: 20151125
  Serious: Yes (Other)
  Sender: FDA-Public Use
  Company Number: US-GILEAD-2015-0166521

PATIENT
  Age: 50 Year
  Sex: Male

DRUGS (4)
  1. EPZICOM [Concomitant]
     Active Substance: ABACAVIR SULFATE\LAMIVUDINE
     Dosage: 300 MG, QD
  2. HARVONI [Suspect]
     Active Substance: LEDIPASVIR\SOFOSBUVIR
     Indication: CHRONIC HEPATITIS C
     Dosage: 1 DF, QD
     Route: 065
     Dates: start: 20150717, end: 20150731
  3. EDURANT [Concomitant]
     Active Substance: RILPIVIRINE HYDROCHLORIDE
     Dosage: 25 MG, QD
  4. PRED-G [Concomitant]
     Active Substance: GENTAMICIN\GENTAMICIN SULFATE\PREDNISOLONE ACETATE

REACTIONS (1)
  - Retinitis [Unknown]

NARRATIVE: CASE EVENT DATE: 20150719
